FAERS Safety Report 24372285 (Version 5)
Quarter: 2025Q1

REPORT INFORMATION
  Report Type: Spontaneous
  Country: JP (occurrence: JP)
  Receive Date: 20240927
  Receipt Date: 20250328
  Transmission Date: 20250408
  Serious: Yes (Death, Hospitalization, Disabling)
  Sender: ROCHE
  Company Number: JP-CHUGAI-2024033092

PATIENT
  Age: 52 Year
  Sex: Male
  Weight: 78.2 kg

DRUGS (11)
  1. GAZYVA [Suspect]
     Active Substance: OBINUTUZUMAB
     Indication: Follicular lymphoma
     Route: 042
     Dates: start: 20230621
  2. GAZYVA [Suspect]
     Active Substance: OBINUTUZUMAB
     Route: 042
     Dates: start: 202312
  3. LANSOPRAZOLE [Concomitant]
     Active Substance: LANSOPRAZOLE
     Indication: Follicular lymphoma
     Route: 050
  4. CYCLOPHOSPHAMIDE [Concomitant]
     Active Substance: CYCLOPHOSPHAMIDE
     Indication: Follicular lymphoma
     Route: 042
     Dates: start: 202306, end: 20240325
  5. DOXORUBICIN HYDROCHLORIDE [Concomitant]
     Active Substance: DOXORUBICIN HYDROCHLORIDE
     Indication: Follicular lymphoma
     Route: 042
     Dates: start: 202306, end: 20240325
  6. VINCRISTINE SULFATE [Concomitant]
     Active Substance: VINCRISTINE SULFATE
     Indication: Follicular lymphoma
     Route: 042
     Dates: start: 202306, end: 20240325
  7. PREDNISOLONE [Concomitant]
     Active Substance: PREDNISOLONE
     Indication: Follicular lymphoma
     Dosage: UNK
     Route: 050
     Dates: start: 202306, end: 2023
  8. PREDNISOLONE [Concomitant]
     Active Substance: PREDNISOLONE
  9. PREDNISOLONE [Concomitant]
     Active Substance: PREDNISOLONE
     Dates: start: 20240911
  10. PREDNISOLONE [Concomitant]
     Active Substance: PREDNISOLONE
     Dates: start: 2024
  11. PREDNISOLONE [Concomitant]
     Active Substance: PREDNISOLONE
     Dates: start: 202408

REACTIONS (8)
  - Respiratory failure [Unknown]
  - Hypogammaglobulinaemia [Recovered/Resolved]
  - Multiple organ dysfunction syndrome [Fatal]
  - Pneumonia pseudomonal [Fatal]
  - Sepsis [Fatal]
  - Interstitial lung disease [Recovered/Resolved]
  - COVID-19 [Recovered/Resolved]
  - Pneumonia bacterial [Recovered/Resolved]

NARRATIVE: CASE EVENT DATE: 20240101
